FAERS Safety Report 7966937-1 (Version None)
Quarter: 2011Q4

REPORT INFORMATION
  Report Type: 
  Country: None (occurrence: None)
  Receive Date: 20111209
  Receipt Date: 20111206
  Transmission Date: 20120403
  Serious: Yes (Hospitalization, Other)
  Sender: FDA-Public Use
  Company Number: CH-PFIZER INC-2011297228

PATIENT
  Age: 18 Year
  Sex: Female

DRUGS (5)
  1. SEROQUEL [Suspect]
     Indication: DEPRESSION
     Dosage: 50 MG, 1X/DAY
     Route: 048
  2. NOZINAN [Suspect]
     Indication: DRUG TOLERANCE
     Dosage: 30 MG, SINGLE
     Route: 048
     Dates: start: 20110203, end: 20110203
  3. ESCITALOPRAM [Suspect]
     Indication: DEPRESSION
     Dosage: 20 MG, 1X/DAY
  4. EFFEXOR XR [Suspect]
     Indication: DEPRESSION
     Dosage: 75 MG, 1X/DAY
     Route: 048
  5. NOZINAN [Suspect]
     Indication: IMPULSE-CONTROL DISORDER

REACTIONS (8)
  - DRUG INTERACTION [None]
  - SUICIDAL IDEATION [None]
  - NYSTAGMUS [None]
  - GAIT DISTURBANCE [None]
  - SOMNOLENCE [None]
  - SPEECH DISORDER [None]
  - EXTRAPYRAMIDAL DISORDER [None]
  - BALANCE DISORDER [None]
